FAERS Safety Report 15637864 (Version 1)
Quarter: 2018Q4

REPORT INFORMATION
  Report Type: Spontaneous
  Country: US (occurrence: US)
  Receive Date: 20181120
  Receipt Date: 20181120
  Transmission Date: 20190205
  Serious: No
  Sender: FDA-Public Use
  Company Number: US-CIPLA LTD.-2018US20713

PATIENT

DRUGS (3)
  1. GABAPENTIN. [Suspect]
     Active Substance: GABAPENTIN
     Indication: NEURALGIA
     Dosage: 300 MG, BID (STRENGTH: 300 MG)
     Route: 048
  2. GABAPENTIN. [Suspect]
     Active Substance: GABAPENTIN
     Dosage: 300 MG, UNK (STRENGTH: 300 MG)
     Route: 048
     Dates: start: 201808, end: 201808
  3. GABAPENTIN. [Suspect]
     Active Substance: GABAPENTIN
     Dosage: 100 MG, 6 CAPSULES
     Route: 048

REACTIONS (3)
  - Malaise [Unknown]
  - Diarrhoea [Unknown]
  - Product use complaint [Unknown]

NARRATIVE: CASE EVENT DATE: 201808
